FAERS Safety Report 22528106 (Version 1)
Quarter: 2023Q2

REPORT INFORMATION
  Report Type: Report from Study
  Country: CO (occurrence: CO)
  Receive Date: 20230607
  Receipt Date: 20230607
  Transmission Date: 20230721
  Serious: Yes (Other)
  Sender: FDA-Public Use
  Company Number: CO-ABBVIE-5277850

PATIENT
  Sex: Male
  Weight: 83 kg

DRUGS (1)
  1. SKYRIZI [Suspect]
     Active Substance: RISANKIZUMAB-RZAA
     Indication: Psoriasis
     Dosage: FORM STRENGTH: 75 MG
     Route: 058
     Dates: start: 20201020

REACTIONS (5)
  - Hypoacusis [Not Recovered/Not Resolved]
  - Bone disorder [Unknown]
  - Renal disorder [Unknown]
  - Prostatic disorder [Unknown]
  - Hypertension [Unknown]

NARRATIVE: CASE EVENT DATE: 20220101
